FAERS Safety Report 14508343 (Version 1)
Quarter: 2018Q1

REPORT INFORMATION
  Report Type: Spontaneous
  Country: IT (occurrence: IT)
  Receive Date: 20180209
  Receipt Date: 20180209
  Transmission Date: 20180509
  Serious: Yes (Hospitalization, Other)
  Sender: FDA-Public Use
  Company Number: IT-009507513-1802ITA002777

PATIENT
  Age: 58 Year
  Sex: Female

DRUGS (2)
  1. SINVACOR 10 MG COMPRESSE RIVESTITE CON FILM [Suspect]
     Active Substance: SIMVASTATIN
     Indication: HYPERCHOLESTEROLAEMIA
     Dosage: UNK
     Route: 048
  2. BRUFEN [Concomitant]
     Active Substance: IBUPROFEN
     Indication: TOOTHACHE
     Dosage: FREQUENCY: USED TO TAKE ALMOST DAILY

REACTIONS (1)
  - Cerebral haemorrhage [Recovered/Resolved]

NARRATIVE: CASE EVENT DATE: 201607
